FAERS Safety Report 24634195 (Version 5)
Quarter: 2025Q2

REPORT INFORMATION
  Report Type: Spontaneous
  Country: US (occurrence: US)
  Receive Date: 20241119
  Receipt Date: 20250626
  Transmission Date: 20250716
  Serious: Yes (Disabling, Other)
  Sender: AMGEN
  Company Number: US-AMGEN-USASP2024226342

PATIENT
  Age: 38 Year
  Sex: Female

DRUGS (111)
  1. TEPEZZA [Suspect]
     Active Substance: TEPROTUMUMAB-TRBW
     Indication: Graves^ disease
     Dosage: 658 MILLIGRAM, Q3WK
     Route: 040
     Dates: start: 20221025, end: 20221025
  2. TEPEZZA [Suspect]
     Active Substance: TEPROTUMUMAB-TRBW
     Indication: Endocrine ophthalmopathy
     Dosage: 1340 MILLIGRAM, Q3WK
     Route: 040
     Dates: start: 20221115, end: 20221115
  3. TEPEZZA [Suspect]
     Active Substance: TEPROTUMUMAB-TRBW
     Dosage: 1304 MILLIGRAM, Q3WK
     Route: 040
     Dates: start: 20221207, end: 20221207
  4. TEPEZZA [Suspect]
     Active Substance: TEPROTUMUMAB-TRBW
     Dosage: 1258 MILLIGRAM, Q3WK
     Route: 040
     Dates: start: 20221230, end: 20221230
  5. TEPEZZA [Suspect]
     Active Substance: TEPROTUMUMAB-TRBW
     Dosage: 1268 MILLIGRAM, Q3WK
     Route: 040
     Dates: start: 20230204, end: 20230204
  6. TEPEZZA [Suspect]
     Active Substance: TEPROTUMUMAB-TRBW
     Dosage: 1226 MILLIGRAM, Q3WK
     Route: 040
     Dates: start: 20230328, end: 20230328
  7. TEPEZZA [Suspect]
     Active Substance: TEPROTUMUMAB-TRBW
     Dosage: 1232 MILLIGRAM, Q3WK
     Route: 040
     Dates: start: 20230425, end: 20230425
  8. TEPEZZA [Suspect]
     Active Substance: TEPROTUMUMAB-TRBW
     Dosage: 1186 MILLIGRAM, Q3WK
     Route: 040
     Dates: start: 20230523, end: 20230523
  9. TEPEZZA [Suspect]
     Active Substance: TEPROTUMUMAB-TRBW
     Route: 040
     Dates: end: 202307
  10. PREDNISONE [Suspect]
     Active Substance: PREDNISONE
     Indication: Myasthenia gravis
     Dosage: 20 MILLIGRAM, QD
     Route: 048
  11. PREDNISONE [Suspect]
     Active Substance: PREDNISONE
     Dosage: 20 MILLIGRAM, QD
     Route: 048
     Dates: start: 20221025
  12. PREDNISONE [Suspect]
     Active Substance: PREDNISONE
     Dosage: 20 MILLIGRAM, QD
     Route: 048
     Dates: start: 20221115
  13. PREDNISONE [Suspect]
     Active Substance: PREDNISONE
     Dosage: 20 MILLIGRAM, QD
     Route: 048
     Dates: start: 20221207
  14. PREDNISONE [Suspect]
     Active Substance: PREDNISONE
     Dosage: 20 MILLIGRAM, QD
     Route: 048
     Dates: start: 20221230
  15. PREDNISONE [Suspect]
     Active Substance: PREDNISONE
     Dosage: 20 MILLIGRAM, QD
     Route: 048
     Dates: start: 20230204
  16. PREDNISONE [Suspect]
     Active Substance: PREDNISONE
     Dosage: 20 MILLIGRAM, QD
     Route: 048
     Dates: start: 20230328
  17. PREDNISONE [Suspect]
     Active Substance: PREDNISONE
     Dosage: 20 MILLIGRAM, QD
     Route: 048
     Dates: start: 20230425
  18. PREDNISONE [Suspect]
     Active Substance: PREDNISONE
     Dosage: 20 MILLIGRAM, QD
     Route: 048
     Dates: start: 20230523
  19. PREDNISONE [Suspect]
     Active Substance: PREDNISONE
     Dosage: 10 MILLIGRAM, QD
     Route: 048
  20. THIABENDAZOLE [Concomitant]
     Active Substance: THIABENDAZOLE
     Route: 065
  21. METHIMAZOLE [Concomitant]
     Active Substance: METHIMAZOLE
     Dosage: 15 MILLIGRAM, QD
     Route: 048
  22. METHIMAZOLE [Concomitant]
     Active Substance: METHIMAZOLE
     Dosage: 5 MILLIGRAM, QD (TAKE 1.5 TABLET)
     Route: 048
  23. METHIMAZOLE [Concomitant]
     Active Substance: METHIMAZOLE
     Dosage: 10 MILLIGRAM, QD
     Route: 048
     Dates: start: 20221025
  24. METHIMAZOLE [Concomitant]
     Active Substance: METHIMAZOLE
     Dosage: 10 MILLIGRAM, QD
     Route: 048
     Dates: start: 20221115
  25. METHIMAZOLE [Concomitant]
     Active Substance: METHIMAZOLE
     Dosage: 10 MILLIGRAM, QD
     Route: 048
     Dates: start: 20221207
  26. METHIMAZOLE [Concomitant]
     Active Substance: METHIMAZOLE
     Dosage: 10 MILLIGRAM, QD
     Route: 048
     Dates: start: 20221230
  27. METHIMAZOLE [Concomitant]
     Active Substance: METHIMAZOLE
     Dosage: 10 MILLIGRAM, QD
     Route: 048
     Dates: start: 20230204
  28. METHIMAZOLE [Concomitant]
     Active Substance: METHIMAZOLE
     Dosage: 10 MILLIGRAM, QD
     Route: 048
     Dates: start: 20230328
  29. METHIMAZOLE [Concomitant]
     Active Substance: METHIMAZOLE
     Dosage: 10 MILLIGRAM, QD
     Route: 048
     Dates: start: 20230425
  30. METHIMAZOLE [Concomitant]
     Active Substance: METHIMAZOLE
     Dosage: 10 MILLIGRAM, QD
     Route: 048
     Dates: start: 20230523
  31. ERGOCALCIFEROL [Concomitant]
     Active Substance: ERGOCALCIFEROL
     Dosage: 1.25 MILLIGRAM, QMO
     Route: 048
     Dates: end: 20221121
  32. PYRIDOSTIGMINE BROMIDE [Concomitant]
     Active Substance: PYRIDOSTIGMINE BROMIDE
     Dosage: 60 MILLIGRAM, TID
     Route: 048
  33. PYRIDOSTIGMINE BROMIDE [Concomitant]
     Active Substance: PYRIDOSTIGMINE BROMIDE
     Dosage: 60 MILLIGRAM, TID
     Route: 048
     Dates: start: 20221025
  34. PYRIDOSTIGMINE BROMIDE [Concomitant]
     Active Substance: PYRIDOSTIGMINE BROMIDE
     Dosage: 60 MILLIGRAM, TID
     Route: 048
     Dates: start: 20221115
  35. PYRIDOSTIGMINE BROMIDE [Concomitant]
     Active Substance: PYRIDOSTIGMINE BROMIDE
     Dosage: 60 MILLIGRAM, TID
     Route: 048
     Dates: start: 20221207
  36. PYRIDOSTIGMINE BROMIDE [Concomitant]
     Active Substance: PYRIDOSTIGMINE BROMIDE
     Dosage: 60 MILLIGRAM, TID
     Route: 048
     Dates: start: 20221230
  37. PYRIDOSTIGMINE BROMIDE [Concomitant]
     Active Substance: PYRIDOSTIGMINE BROMIDE
     Dosage: 60 MILLIGRAM, TID
     Route: 048
     Dates: start: 20230204
  38. PYRIDOSTIGMINE BROMIDE [Concomitant]
     Active Substance: PYRIDOSTIGMINE BROMIDE
     Dosage: 60 MILLIGRAM, TID
     Route: 048
     Dates: start: 20230328
  39. PYRIDOSTIGMINE BROMIDE [Concomitant]
     Active Substance: PYRIDOSTIGMINE BROMIDE
     Dosage: 60 MILLIGRAM, TID
     Route: 048
     Dates: start: 20230425
  40. PYRIDOSTIGMINE BROMIDE [Concomitant]
     Active Substance: PYRIDOSTIGMINE BROMIDE
     Dosage: 60 MILLIGRAM, TID
     Route: 048
     Dates: start: 20230523
  41. ACETAZOLAMIDE [Concomitant]
     Active Substance: ACETAZOLAMIDE
     Dosage: 250 MILLIGRAM, QD
     Route: 048
  42. ACETAZOLAMIDE [Concomitant]
     Active Substance: ACETAZOLAMIDE
     Dosage: 250 MILLIGRAM, BID
     Route: 048
     Dates: start: 20221025
  43. ACETAZOLAMIDE [Concomitant]
     Active Substance: ACETAZOLAMIDE
     Dosage: 250 MILLIGRAM, QD
     Route: 048
     Dates: start: 20221025
  44. ACETAZOLAMIDE [Concomitant]
     Active Substance: ACETAZOLAMIDE
     Dosage: 250 MILLIGRAM, QD
     Route: 048
     Dates: start: 20221115
  45. ACETAZOLAMIDE [Concomitant]
     Active Substance: ACETAZOLAMIDE
     Dosage: 250 MILLIGRAM, QD
     Route: 048
     Dates: start: 20221207
  46. ACETAZOLAMIDE [Concomitant]
     Active Substance: ACETAZOLAMIDE
     Dosage: 250 MILLIGRAM, QD
     Route: 048
     Dates: start: 20221230
  47. ACETAZOLAMIDE [Concomitant]
     Active Substance: ACETAZOLAMIDE
     Dosage: 250 MILLIGRAM, QD
     Route: 048
     Dates: start: 20230204
  48. ACETAZOLAMIDE [Concomitant]
     Active Substance: ACETAZOLAMIDE
     Dosage: 250 MILLIGRAM, QD
     Route: 048
     Dates: start: 20230328
  49. ACETAZOLAMIDE [Concomitant]
     Active Substance: ACETAZOLAMIDE
     Dosage: 250 MILLIGRAM, QD
     Route: 048
     Dates: start: 20230425
  50. ACETAZOLAMIDE [Concomitant]
     Active Substance: ACETAZOLAMIDE
     Dosage: 250 MILLIGRAM, QD
     Route: 048
     Dates: start: 20230523
  51. VITAMIN D [Concomitant]
     Active Substance: VITAMIN D NOS
     Dosage: 50000 UNIT, Q2WK
     Route: 048
  52. ATORVASTATIN [Concomitant]
     Active Substance: ATORVASTATIN
     Dosage: 10 MILLIGRAM, QD
     Route: 048
  53. ATORVASTATIN [Concomitant]
     Active Substance: ATORVASTATIN
     Dosage: 20 MILLIGRAM, QD
     Route: 048
  54. INSULIN NOS [Concomitant]
     Active Substance: INSULIN NOS
     Dosage: UNK, QID
     Route: 058
     Dates: start: 20230110
  55. SIMVASTATIN [Concomitant]
     Active Substance: SIMVASTATIN
     Route: 048
     Dates: start: 20240916
  56. ACETAMINOPHEN [Concomitant]
     Active Substance: ACETAMINOPHEN
     Route: 048
     Dates: start: 20221025
  57. ACETAMINOPHEN [Concomitant]
     Active Substance: ACETAMINOPHEN
     Route: 048
     Dates: start: 20221115
  58. ACETAMINOPHEN [Concomitant]
     Active Substance: ACETAMINOPHEN
     Route: 048
     Dates: start: 20221207
  59. ACETAMINOPHEN [Concomitant]
     Active Substance: ACETAMINOPHEN
     Route: 048
     Dates: start: 20221230
  60. ACETAMINOPHEN [Concomitant]
     Active Substance: ACETAMINOPHEN
     Route: 048
     Dates: start: 20230204
  61. ACETAMINOPHEN [Concomitant]
     Active Substance: ACETAMINOPHEN
     Route: 048
     Dates: start: 20230328
  62. ACETAMINOPHEN [Concomitant]
     Active Substance: ACETAMINOPHEN
     Route: 048
     Dates: start: 20230425
  63. ACETAMINOPHEN [Concomitant]
     Active Substance: ACETAMINOPHEN
     Route: 048
     Dates: start: 20230523
  64. DIPHENHYDRAMINE [Concomitant]
     Active Substance: DIPHENHYDRAMINE
     Route: 040
     Dates: start: 20221025
  65. DIPHENHYDRAMINE [Concomitant]
     Active Substance: DIPHENHYDRAMINE
     Route: 040
     Dates: start: 20221115
  66. DIPHENHYDRAMINE [Concomitant]
     Active Substance: DIPHENHYDRAMINE
     Route: 040
     Dates: start: 20221207
  67. DIPHENHYDRAMINE [Concomitant]
     Active Substance: DIPHENHYDRAMINE
     Route: 040
     Dates: start: 20221230
  68. DIPHENHYDRAMINE [Concomitant]
     Active Substance: DIPHENHYDRAMINE
     Route: 040
     Dates: start: 20230204
  69. DIPHENHYDRAMINE [Concomitant]
     Active Substance: DIPHENHYDRAMINE
     Route: 040
     Dates: start: 20230328
  70. DIPHENHYDRAMINE [Concomitant]
     Active Substance: DIPHENHYDRAMINE
     Route: 040
     Dates: start: 20230425
  71. DIPHENHYDRAMINE [Concomitant]
     Active Substance: DIPHENHYDRAMINE
     Route: 040
     Dates: start: 20230523
  72. METHYLPREDNISOLONE [Concomitant]
     Active Substance: METHYLPREDNISOLONE
     Route: 040
     Dates: start: 20221025
  73. METHYLPREDNISOLONE [Concomitant]
     Active Substance: METHYLPREDNISOLONE
     Route: 040
     Dates: start: 20221115
  74. METHYLPREDNISOLONE [Concomitant]
     Active Substance: METHYLPREDNISOLONE
     Route: 040
     Dates: start: 20221207
  75. METHYLPREDNISOLONE [Concomitant]
     Active Substance: METHYLPREDNISOLONE
     Route: 040
     Dates: start: 20221230
  76. METHYLPREDNISOLONE [Concomitant]
     Active Substance: METHYLPREDNISOLONE
     Route: 040
     Dates: start: 20230204
  77. METHYLPREDNISOLONE [Concomitant]
     Active Substance: METHYLPREDNISOLONE
     Route: 040
     Dates: start: 20230328
  78. METHYLPREDNISOLONE [Concomitant]
     Active Substance: METHYLPREDNISOLONE
     Route: 040
     Dates: start: 20230425
  79. METHYLPREDNISOLONE [Concomitant]
     Active Substance: METHYLPREDNISOLONE
     Route: 040
     Dates: start: 20230523
  80. EPINEPHRINE [Concomitant]
     Active Substance: EPINEPHRINE
     Route: 030
     Dates: start: 20221025
  81. EPINEPHRINE [Concomitant]
     Active Substance: EPINEPHRINE
     Route: 030
     Dates: start: 20221115
  82. EPINEPHRINE [Concomitant]
     Active Substance: EPINEPHRINE
     Route: 030
     Dates: start: 20221207
  83. EPINEPHRINE [Concomitant]
     Active Substance: EPINEPHRINE
     Route: 030
     Dates: start: 20221230
  84. EPINEPHRINE [Concomitant]
     Active Substance: EPINEPHRINE
     Route: 030
     Dates: start: 20230204
  85. EPINEPHRINE [Concomitant]
     Active Substance: EPINEPHRINE
     Route: 030
     Dates: start: 20230328
  86. EPINEPHRINE [Concomitant]
     Active Substance: EPINEPHRINE
     Route: 030
     Dates: start: 20230425
  87. EPINEPHRINE [Concomitant]
     Active Substance: EPINEPHRINE
     Route: 030
     Dates: start: 20230523
  88. OXYGEN [Concomitant]
     Active Substance: OXYGEN
     Route: 065
     Dates: start: 20221025
  89. OXYGEN [Concomitant]
     Active Substance: OXYGEN
     Route: 065
     Dates: start: 20221115
  90. OXYGEN [Concomitant]
     Active Substance: OXYGEN
     Route: 065
     Dates: start: 20221207
  91. OXYGEN [Concomitant]
     Active Substance: OXYGEN
     Route: 065
     Dates: start: 20221230
  92. OXYGEN [Concomitant]
     Active Substance: OXYGEN
     Route: 065
     Dates: start: 20230204
  93. OXYGEN [Concomitant]
     Active Substance: OXYGEN
     Route: 065
     Dates: start: 20230328
  94. OXYGEN [Concomitant]
     Active Substance: OXYGEN
     Route: 065
     Dates: start: 20230425
  95. OXYGEN [Concomitant]
     Active Substance: OXYGEN
     Route: 065
     Dates: start: 20230523
  96. MESTINON [Concomitant]
     Active Substance: PYRIDOSTIGMINE BROMIDE
     Route: 065
  97. PREDNISOLONE [Concomitant]
     Active Substance: PREDNISOLONE
     Route: 065
  98. DIAMOX SEQUELS [Concomitant]
     Active Substance: ACETAZOLAMIDE
     Route: 065
  99. Artificial tears [Concomitant]
     Indication: Dry eye
     Dosage: UNK, QID
     Route: 065
  100. BUTALBITAL, ACETAMINOPHEN, AND CAFFEINE [Concomitant]
     Active Substance: ACETAMINOPHEN\BUTALBITAL\CAFFEINE
     Dosage: 415 MILLIGRAM, Q6H (TAKE 1-2 TABLETS) (50 MG-325 MG-40 MG)
     Route: 048
  101. CANNABIS SATIVA SUBSP. INDICA TOP [Concomitant]
     Active Substance: CANNABIS SATIVA SUBSP. INDICA TOP
     Route: 065
  102. AMOXICILLIN [Concomitant]
     Active Substance: AMOXICILLIN
     Dosage: 500 MILLIGRAM, Q8H
     Route: 048
  103. AMOXICILLIN [Concomitant]
     Active Substance: AMOXICILLIN
     Dosage: 500 MILLIGRAM, Q6H
     Route: 048
  104. POTASSIUM CHLORIDE [Concomitant]
     Active Substance: POTASSIUM CHLORIDE
     Dosage: 20 MILLIEQUIVALENT, QD
     Route: 048
  105. SODIUM CHLORIDE [Concomitant]
     Active Substance: SODIUM CHLORIDE
     Route: 065
  106. BIOTIN [Concomitant]
     Active Substance: BIOTIN
     Dosage: 5 MILLIGRAM, BID
     Route: 048
  107. ONDANSETRON HYDROCHLORIDE [Concomitant]
     Active Substance: ONDANSETRON HYDROCHLORIDE
     Dosage: 4 MILLIGRAM, BID
     Route: 048
  108. LOSARTAN POTASSIUM AND HYDROCHLOROTHIAZIDE [Concomitant]
     Active Substance: HYDROCHLOROTHIAZIDE\LOSARTAN POTASSIUM
     Dosage: UNK UNK, QD
     Route: 048
  109. CHOLECALCIFEROL [Concomitant]
     Active Substance: CHOLECALCIFEROL
     Dosage: 1.25 MILLIGRAM, QWK
     Route: 048
  110. LORAZEPAM [Concomitant]
     Active Substance: LORAZEPAM
     Dosage: 0.5 MILLIGRAM, QD
     Route: 048
  111. PROPRANOLOL HYDROCHLORIDE [Concomitant]
     Active Substance: PROPRANOLOL HYDROCHLORIDE
     Dosage: 20 MILLIGRAM, BID
     Route: 048

REACTIONS (50)
  - Deafness neurosensory [Not Recovered/Not Resolved]
  - Endocrine ophthalmopathy [Unknown]
  - Graves^ disease [Unknown]
  - Type 2 diabetes mellitus [Unknown]
  - Syncope [Unknown]
  - Hypokalaemia [Unknown]
  - Major depression [Unknown]
  - Emotional distress [Unknown]
  - Anxiety [Unknown]
  - Product use complaint [Unknown]
  - Conjunctival oedema [Unknown]
  - Dizziness [Unknown]
  - Vitreous floaters [Unknown]
  - Iron deficiency [Unknown]
  - Hypercalcaemia [Unknown]
  - Insomnia [Unknown]
  - Vitamin D deficiency [Unknown]
  - Type V hyperlipidaemia [Unknown]
  - Paraesthesia [Unknown]
  - Arthralgia [Unknown]
  - Vitamin B12 deficiency [Unknown]
  - Blood thyroid stimulating hormone increased [Unknown]
  - Dry eye [Unknown]
  - Thyroid stimulating immunoglobulin increased [Unknown]
  - Blood thyroid stimulating hormone decreased [Unknown]
  - Dyspnoea [Unknown]
  - Blood creatinine decreased [Unknown]
  - High density lipoprotein decreased [Unknown]
  - Thyroxine increased [Unknown]
  - Blood alkaline phosphatase increased [Unknown]
  - Alanine aminotransferase increased [Unknown]
  - Tri-iodothyronine free increased [Unknown]
  - Anti-thyroid antibody increased [Unknown]
  - Chest discomfort [Recovered/Resolved]
  - Lymphocyte count increased [Unknown]
  - Red blood cell count increased [Unknown]
  - White blood cell count increased [Unknown]
  - Haematocrit increased [Unknown]
  - Blood chloride increased [Unknown]
  - Blood potassium decreased [Unknown]
  - Blood triglycerides increased [Unknown]
  - Feeling abnormal [Unknown]
  - Abdominal pain upper [Unknown]
  - Serum ferritin decreased [Unknown]
  - Off label use [Unknown]
  - Protein total decreased [Unknown]
  - Asthenia [Unknown]
  - Weight decreased [Unknown]
  - Headache [Unknown]
  - Fatigue [Unknown]

NARRATIVE: CASE EVENT DATE: 20221201
